FAERS Safety Report 5241796-9 (Version None)
Quarter: 2007Q1

REPORT INFORMATION
  Report Type: 
  Country: None (occurrence: None)
  Receive Date: 20070220
  Receipt Date: 20070212
  Transmission Date: 20070707
  Serious: Yes (Hospitalization)
  Sender: FDA-Public Use
  Company Number: CZ-ROCHE-482220

PATIENT
  Age: 26 Year
  Sex: Female
  Weight: 56.5 kg

DRUGS (4)
  1. PEG-INTERFERON ALFA 2A (RO 25-8310) [Suspect]
     Route: 030
     Dates: start: 20060615, end: 20061123
  2. RIBAVIRIN [Suspect]
     Dosage: TWO TIMES 200 MG GIVEN IN THE MORNING AND TWO TIMES 200 MG GIVEN IN THE EVENING.
     Route: 048
     Dates: start: 20060615, end: 20061123
  3. FLAVOBION [Concomitant]
     Dosage: ONE TABLET GIVEN IN THE MORNING, ONE TABLET GIVEN AT NOON, ONE TABLET GIVEN IN THE EVENING.
     Dates: start: 20060615
  4. IBUPROFEN [Concomitant]
     Dosage: ADMINISTERED IN THE MORNING.
     Dates: start: 20060615

REACTIONS (1)
  - AFFECTIVE DISORDER [None]
